FAERS Safety Report 8984548 (Version 1)
Quarter: 2012Q4

REPORT INFORMATION
  Report Type: Spontaneous
  Country: BB (occurrence: None)
  Receive Date: 20121217
  Receipt Date: 20121217
  Transmission Date: 20130627
  Serious: Yes (Hospitalization, Other)
  Sender: FDA-Public Use
  Company Number: 2012-22034

PATIENT
  Age: 33 Year
  Sex: Female

DRUGS (3)
  1. FENTANYL [Suspect]
     Route: 042
  2. METFORMIN HYDROCHLORIDE [Suspect]
  3. METHYLDOPA [Suspect]

REACTIONS (2)
  - Stillbirth [None]
  - Maternal exposure during pregnancy [None]
